FAERS Safety Report 8979287 (Version 1)
Quarter: 2012Q4

REPORT INFORMATION
  Report Type: 
  Country: DK (occurrence: ES)
  Receive Date: 20121221
  Receipt Date: 20121221
  Transmission Date: 20130627
  Serious: Yes (Hospitalization)
  Sender: FDA-Public Use
  Company Number: ES-SHIRE-ALL1-2012-06418

PATIENT
  Age: 51 Year
  Sex: Male

DRUGS (6)
  1. 426 (MIDODRINE) [Suspect]
     Indication: ORTHOSTATIC HYPOTENSION
     Dosage: 7.5 mg, Unknown
     Route: 048
     Dates: start: 20120619, end: 20120624
  2. CLOXACILLIN [Concomitant]
     Indication: ARTHRITIS BACTERIAL
     Dosage: 8 g, Unknown
     Route: 042
     Dates: start: 20120601, end: 20120615
  3. METOCLOPRAMIDE [Concomitant]
     Indication: VOMITING
     Dosage: 30 mg, Unknown
     Route: 042
     Dates: start: 20120621
  4. BEMIPARIN [Concomitant]
     Indication: PRODUCT USED FOR UNKNOWN INDICATION
     Dosage: 5000 IU, Unknown
     Route: 058
     Dates: start: 20120602
  5. PANTOPRAZOLE [Concomitant]
     Indication: PRODUCT USED FOR UNKNOWN INDICATION
     Dosage: 40 mg, Unknown
     Route: 048
     Dates: start: 20120619
  6. CALCITRIOL [Concomitant]
     Indication: HYPOCALCAEMIA
     Dosage: 0.25 ?g, Unknown
     Route: 048
     Dates: start: 20120616

REACTIONS (2)
  - Pancytopenia [Recovered/Resolved]
  - Coombs positive haemolytic anaemia [Recovered/Resolved]
